FAERS Safety Report 6901588-9 (Version None)
Quarter: 2010Q3

REPORT INFORMATION
  Report Type: 
  Country: None (occurrence: None)
  Receive Date: 20100803
  Receipt Date: 20100723
  Transmission Date: 20110219
  Serious: Yes (Death, Hospitalization)
  Sender: FDA-Public Use
  Company Number: US-BAXTER-2010BH019468

PATIENT
  Age: 62 Year
  Sex: Male

DRUGS (1)
  1. DIANEAL [Suspect]
     Indication: PERITONEAL DIALYSIS
     Route: 033
     Dates: start: 20100430, end: 20100509

REACTIONS (3)
  - CARDIAC FAILURE CONGESTIVE [None]
  - CONSTIPATION [None]
  - RENAL FAILURE CHRONIC [None]
